FAERS Safety Report 8415319-7 (Version None)
Quarter: 2012Q2

REPORT INFORMATION
  Report Type: 
  Country: None (occurrence: None)
  Receive Date: 20120323
  Receipt Date: 20111206
  Transmission Date: 20120825
  Serious: Yes (Other)
  Sender: FDA-Public Use
  Company Number: 163-21880-11121004

PATIENT
  Age: 86 Year
  Sex: Female
  Weight: 66.2 kg

DRUGS (4)
  1. CLONIDINE [Concomitant]
  2. CARVEDILOL [Concomitant]
  3. REVLIMID [Suspect]
     Indication: MULTIPLE MYELOMA
     Dosage: 25 MG, DAILY FOR 21 DAYS, PO
     Route: 048
     Dates: start: 20091215
  4. LOSARTAN POTASSIUM [Concomitant]

REACTIONS (2)
  - SPINAL FRACTURE [None]
  - HYPERTENSION [None]
